FAERS Safety Report 16312450 (Version 2)
Quarter: 2019Q2

REPORT INFORMATION
  Report Type: Spontaneous
  Country: VN (occurrence: VN)
  Receive Date: 20190515
  Receipt Date: 20190624
  Transmission Date: 20190711
  Serious: Yes (Other)
  Sender: FDA-Public Use
  Company Number: VN-ROCHE-2313336

PATIENT
  Age: 50 Year
  Sex: Female

DRUGS (4)
  1. XELODA [Suspect]
     Active Substance: CAPECITABINE
     Dosage: TAKE FROM DAY 1 TO DAY 14, REST FOR 7 DAYS
     Route: 065
     Dates: start: 20190409
  2. OXALIPLATIN. [Suspect]
     Active Substance: OXALIPLATIN
     Indication: COLON CANCER METASTATIC
     Route: 065
     Dates: start: 20181213
  3. AVASTIN [Suspect]
     Active Substance: BEVACIZUMAB
     Indication: COLON CANCER METASTATIC
     Route: 065
     Dates: start: 20181213, end: 20190528
  4. XELODA [Suspect]
     Active Substance: CAPECITABINE
     Indication: COLON CANCER METASTATIC
     Dosage: TAKE FROM DAY 1 TO DAY 14, REST FOR 7 DAYS
     Route: 065
     Dates: start: 20181213, end: 20190313

REACTIONS (11)
  - Discomfort [Unknown]
  - Fatigue [Unknown]
  - Chest pain [Unknown]
  - Blood bilirubin increased [Unknown]
  - Liver injury [Unknown]
  - Hypertension [Not Recovered/Not Resolved]
  - Hepatic steatosis [Unknown]
  - Vomiting [Recovered/Resolved]
  - Hepatic enzyme increased [Unknown]
  - Nausea [Recovered/Resolved]
  - Decreased appetite [Unknown]

NARRATIVE: CASE EVENT DATE: 20181214
